FAERS Safety Report 25820360 (Version 1)
Quarter: 2025Q3

REPORT INFORMATION
  Report Type: Other
  Country: GB (occurrence: GB)
  Receive Date: 20250919
  Receipt Date: 20250919
  Transmission Date: 20251021
  Serious: Yes (Hospitalization)
  Sender: ANI
  Company Number: GB-ANIPHARMA-030556

PATIENT
  Age: 36 Year
  Sex: Female

DRUGS (16)
  1. PYRIDOSTIGMINE [Suspect]
     Active Substance: PYRIDOSTIGMINE
     Indication: Congenital myasthenic syndrome
  2. PREDNISOLONE [Concomitant]
     Active Substance: PREDNISOLONE
     Indication: Congenital myasthenic syndrome
     Route: 048
  3. AZATHIOPRINE [Concomitant]
     Active Substance: AZATHIOPRINE
     Indication: Congenital myasthenic syndrome
  4. IMMUNOGLOBULIN [Concomitant]
     Indication: Congenital myasthenic syndrome
  5. METHYLPREDNISOLONE [Concomitant]
     Active Substance: METHYLPREDNISOLONE
     Indication: Congenital myasthenic syndrome
  6. GLICLAZIDE [Concomitant]
     Active Substance: GLICLAZIDE
     Indication: Diabetes mellitus
  7. AZATHIOPRINE [Concomitant]
     Active Substance: AZATHIOPRINE
     Indication: Congenital myasthenic syndrome
  8. AZATHIOPRINE [Concomitant]
     Active Substance: AZATHIOPRINE
     Indication: Congenital myasthenic syndrome
  9. PREDNISOLONE [Concomitant]
     Active Substance: PREDNISOLONE
     Indication: Congenital myasthenic syndrome
  10. AZATHIOPRINE [Concomitant]
     Active Substance: AZATHIOPRINE
     Indication: Congenital myasthenic syndrome
  11. PYRIDOSTIGMINE [Suspect]
     Active Substance: PYRIDOSTIGMINE
     Indication: Congenital myasthenic syndrome
  12. PREDNISOLONE [Concomitant]
     Active Substance: PREDNISOLONE
     Indication: Congenital myasthenic syndrome
  13. AZATHIOPRINE [Concomitant]
     Active Substance: AZATHIOPRINE
     Indication: Congenital myasthenic syndrome
  14. PREDNISOLONE [Concomitant]
     Active Substance: PREDNISOLONE
     Indication: Congenital myasthenic syndrome
  15. PREDNISOLONE [Concomitant]
     Active Substance: PREDNISOLONE
     Indication: Congenital myasthenic syndrome
  16. PREDNISOLONE [Concomitant]
     Active Substance: PREDNISOLONE
     Indication: Congenital myasthenic syndrome

REACTIONS (1)
  - Condition aggravated [Unknown]
